FAERS Safety Report 22201394 (Version 1)
Quarter: 2023Q2

REPORT INFORMATION
  Report Type: Spontaneous
  Country: CN (occurrence: CN)
  Receive Date: 20230412
  Receipt Date: 20230412
  Transmission Date: 20230722
  Serious: Yes (Other)
  Sender: FDA-Public Use
  Company Number: CN-GLAXOSMITHKLINE-CN2023APC049871

PATIENT

DRUGS (2)
  1. UMECLIDINIUM BROMIDE\VILANTEROL TRIFENATATE [Suspect]
     Active Substance: UMECLIDINIUM BROMIDE\VILANTEROL TRIFENATATE
     Indication: Chronic obstructive pulmonary disease
     Dosage: 1 PUFF(S), QD 30-INHALATIONS
     Route: 055
     Dates: start: 20230405
  2. SYMBICORT [Concomitant]
     Active Substance: BUDESONIDE\FORMOTEROL FUMARATE DIHYDRATE
     Indication: Chronic obstructive pulmonary disease
     Dosage: UNK, STARTED 4-5 YEARS AGO
     Route: 055

REACTIONS (8)
  - Abdominal pain upper [Not Recovered/Not Resolved]
  - Dry mouth [Not Recovered/Not Resolved]
  - Dizziness [Not Recovered/Not Resolved]
  - Ocular discomfort [Not Recovered/Not Resolved]
  - Foreign body in throat [Unknown]
  - Dysgeusia [Unknown]
  - Wrong technique in device usage process [Unknown]
  - Overdose [Unknown]

NARRATIVE: CASE EVENT DATE: 20230405
